FAERS Safety Report 4595018-2 (Version None)
Quarter: 2005Q1

REPORT INFORMATION
  Report Type: 
  Country: None (occurrence: None)
  Receive Date: 20050225
  Receipt Date: 20050217
  Transmission Date: 20050727
  Serious: Yes (Other)
  Sender: FDA-Public Use
  Company Number: 200510344BCC

PATIENT
  Age: 53 Year
  Sex: Male
  Weight: 106.5953 kg

DRUGS (4)
  1. ALEVE [Suspect]
     Indication: BACK PAIN
     Dosage: PRN
  2. VASOTEC [Concomitant]
  3. VIVATEC [Concomitant]
  4. 5 PILLS EVERY DAY FOR HIS HEART CONDITION [Concomitant]

REACTIONS (1)
  - MYOCARDIAL INFARCTION [None]
